FAERS Safety Report 23514510 (Version 1)
Quarter: 2024Q1

REPORT INFORMATION
  Report Type: Spontaneous
  Country: BY (occurrence: BY)
  Receive Date: 20240212
  Receipt Date: 20240212
  Transmission Date: 20240410
  Serious: Yes (Other)
  Sender: FDA-Public Use
  Company Number: BY-Merck Healthcare KGaA-2024005812

PATIENT
  Age: 59 Year
  Sex: Male

DRUGS (7)
  1. ERBITUX [Suspect]
     Active Substance: CETUXIMAB
     Indication: Keratinising squamous cell carcinoma of nasopharynx
     Dosage: 800 MG, UNKNOWN
     Route: 042
     Dates: start: 20231206
  2. ERBITUX [Suspect]
     Active Substance: CETUXIMAB
     Dosage: 400 MG, UNKNOWN (13, 27 DEC-2023, 4, 11, AND 19, JAN-2024)
     Route: 042
     Dates: start: 20231213
  3. AMIODARONE [Concomitant]
     Active Substance: AMIODARONE
     Indication: Somatic symptom disorder
     Dosage: UNK
  4. PANTOPRAZOLE [Concomitant]
     Active Substance: PANTOPRAZOLE
     Indication: Somatic symptom disorder
     Dosage: UNK
  5. INDAPAMIDE [Concomitant]
     Active Substance: INDAPAMIDE
     Indication: Somatic symptom disorder
     Dosage: UNK
  6. NIFICARD [Concomitant]
     Indication: Somatic symptom disorder
     Dosage: UNK
  7. ATORVASTATIN [Concomitant]
     Active Substance: ATORVASTATIN
     Indication: Somatic symptom disorder
     Dosage: UNK

REACTIONS (4)
  - Arrhythmia [Unknown]
  - Skin haemorrhage [Unknown]
  - Off label use [Unknown]
  - Rash papular [Not Recovered/Not Resolved]

NARRATIVE: CASE EVENT DATE: 20231208
